FAERS Safety Report 23661474 (Version 1)
Quarter: 2024Q1

REPORT INFORMATION
  Report Type: Spontaneous
  Country: US (occurrence: US)
  Receive Date: 20240322
  Receipt Date: 20240322
  Transmission Date: 20240409
  Serious: Yes (Other)
  Sender: FDA-Public Use
  Company Number: US-AMGEN-USASP2024054122

PATIENT
  Age: 49 Year
  Sex: Male

DRUGS (9)
  1. BEVACIZUMAB [Suspect]
     Active Substance: BEVACIZUMAB
     Indication: Uveal melanoma
     Dosage: UNK
     Route: 065
  2. TEMOZOLOMIDE [Concomitant]
     Active Substance: TEMOZOLOMIDE
     Indication: Uveal melanoma
     Dosage: UNK
     Route: 065
  3. PEMBROLIZUMAB [Concomitant]
     Active Substance: PEMBROLIZUMAB
     Indication: Uveal melanoma
     Dosage: UNK
     Route: 065
  4. CISPLATIN [Concomitant]
     Active Substance: CISPLATIN
     Indication: Uveal melanoma
     Dosage: UNK
     Route: 065
  5. TEBENTAFUSP [Concomitant]
     Active Substance: TEBENTAFUSP
     Indication: Uveal melanoma
     Dosage: 20 MICROGRAM (ON DAY 1)
     Route: 065
  6. TEBENTAFUSP [Concomitant]
     Active Substance: TEBENTAFUSP
     Dosage: 30 MICROGRAM (ON DAY 8)
     Route: 065
  7. TEBENTAFUSP [Concomitant]
     Active Substance: TEBENTAFUSP
     Dosage: 68 MICROGRAM (ON DAY 15)
     Route: 065
  8. TEBENTAFUSP [Concomitant]
     Active Substance: TEBENTAFUSP
     Dosage: 68 MICROGRAM, QWK
     Route: 065
  9. FOTEMUSTINE [Concomitant]
     Active Substance: FOTEMUSTINE
     Indication: Uveal melanoma
     Dosage: UNK
     Route: 065

REACTIONS (3)
  - Uveal melanoma [Unknown]
  - Type IV hypersensitivity reaction [Recovered/Resolved]
  - Off label use [Unknown]
